FAERS Safety Report 4264676-4 (Version None)
Quarter: 2004Q1

REPORT INFORMATION
  Report Type: 
  Country: None (occurrence: None)
  Receive Date: 20040105
  Receipt Date: 20031217
  Transmission Date: 20041129
  Serious: Yes (Death, Hospitalization)
  Sender: FDA-Public Use
  Company Number: STA-AE-03-MTX-192

PATIENT
  Age: 67 Year
  Sex: Male

DRUGS (10)
  1. RHEUMATREX [Suspect]
     Indication: RHEUMATOID ARTHRITIS
     Dosage: 4 MG 1X PER 1 WEEK, ORAL
     Route: 048
     Dates: start: 20010719, end: 20021002
  2. RHEUMATREX [Suspect]
     Indication: RHEUMATOID ARTHRITIS
     Dosage: 6 MG 1X PER 1 WEEK, ORAL
     Route: 048
     Dates: start: 20021002, end: 20030319
  3. RHEUMATREX [Suspect]
     Indication: RHEUMATOID ARTHRITIS
     Dosage: 8 MG 1X PER 1 WEEK, ORAL
     Route: 048
     Dates: start: 20030319, end: 20031110
  4. PREDNISONE [Concomitant]
  5. CONIEL (BENIDIPINE HYDROCHLORIDE) [Concomitant]
  6. VOLTAREN [Concomitant]
  7. SELBEX (TEPRENONE) [Concomitant]
  8. METHYCOBAL (MECOBALAMIN) [Concomitant]
  9. AZULFIDINE [Concomitant]
  10. LIPITOR [Concomitant]

REACTIONS (5)
  - ANOREXIA [None]
  - CHILLS [None]
  - DIARRHOEA [None]
  - PNEUMONIA LEGIONELLA [None]
  - VOMITING [None]
